FAERS Safety Report 6284640-3 (Version None)
Quarter: 2009Q3

REPORT INFORMATION
  Report Type: 
  Country: None (occurrence: None)
  Receive Date: 20090723
  Receipt Date: 20090715
  Transmission Date: 20100115
  Serious: Yes (Hospitalization)
  Sender: FDA-Public Use
  Company Number: 2009AL002583

PATIENT
  Age: 63 Year
  Sex: Female

DRUGS (17)
  1. DIGOXIN [Suspect]
     Dosage: 0.25MG DAILY PO
     Route: 048
  2. AMITRIPTYLINE HCL [Concomitant]
  3. ATENOLOL [Concomitant]
  4. BIMATOPROST [Concomitant]
  5. DILTIAZEM [Concomitant]
  6. LASIX [Concomitant]
  7. LANTUS [Concomitant]
  8. NOVOLOG [Concomitant]
  9. INSULIN [Concomitant]
  10. PRAMLINTIDE [Concomitant]
  11. SPIRONOLACTONE [Concomitant]
  12. OMEPRAZOLE [Concomitant]
  13. CRESTOR [Concomitant]
  14. VALSARTAN [Concomitant]
  15. ISOSORBIDE DINITRATE [Concomitant]
  16. PLAVIX [Concomitant]
  17. ASPIRIN [Concomitant]

REACTIONS (6)
  - CORONARY ARTERY STENOSIS [None]
  - DYSPNOEA EXERTIONAL [None]
  - ECONOMIC PROBLEM [None]
  - FATIGUE [None]
  - INJURY [None]
  - OEDEMA [None]
